FAERS Safety Report 6001892-5 (Version None)
Quarter: 2008Q4

REPORT INFORMATION
  Report Type: 
  Country: None (occurrence: None)
  Receive Date: 20081215
  Receipt Date: 20080502
  Transmission Date: 20090506
  Serious: No
  Sender: FDA-Public Use
  Company Number: US-AMGEN-KDL276670

PATIENT
  Sex: Female
  Weight: 59 kg

DRUGS (5)
  1. ENBREL [Suspect]
     Indication: RHEUMATOID ARTHRITIS
     Route: 058
     Dates: start: 20070108
  2. NORVASC [Concomitant]
     Dates: start: 20030101
  3. TOPRAL [Concomitant]
  4. VYTORIN [Concomitant]
     Dates: start: 20060101
  5. OXYCONTIN [Concomitant]
     Dates: start: 20080301

REACTIONS (1)
  - BRONCHITIS [None]
